APPROVED DRUG PRODUCT: POLYETHYLENE GLYCOL 3350
Active Ingredient: POLYETHYLENE GLYCOL 3350
Strength: 17GM/SCOOPFUL
Dosage Form/Route: FOR SOLUTION;ORAL
Application: A090567 | Product #001
Applicant: PADDOCK LABORATORIES LLC
Approved: Oct 15, 2009 | RLD: No | RS: No | Type: DISCN